FAERS Safety Report 6566528-3 (Version None)
Quarter: 2010Q1

REPORT INFORMATION
  Report Type: 
  Country: None (occurrence: None)
  Receive Date: 20100202
  Receipt Date: 20100127
  Transmission Date: 20100710
  Serious: Yes (Hospitalization, Other)
  Sender: FDA-Public Use
  Company Number: NL-ROXANE LABORATORIES, INC.-2010-RO-00102RO

PATIENT
  Age: 40 Year
  Sex: Female

DRUGS (5)
  1. AZATHIOPRINE [Suspect]
     Indication: COLITIS ULCERATIVE
  2. PREDNISONE [Suspect]
     Indication: COLITIS ULCERATIVE
     Route: 048
  3. PREDNISONE [Suspect]
     Route: 048
  4. MESALAZINE [Concomitant]
     Indication: COLITIS ULCERATIVE
  5. ANTIBIOTICS [Concomitant]
     Indication: LUNG DISORDER

REACTIONS (4)
  - BONE MARROW FAILURE [None]
  - HEPATIC ENZYME INCREASED [None]
  - PNEUMONITIS [None]
  - PULMONARY TOXICITY [None]
